FAERS Safety Report 6453170-8 (Version None)
Quarter: 2009Q4

REPORT INFORMATION
  Report Type: 
  Country: None (occurrence: None)
  Receive Date: 20091117
  Receipt Date: 20091029
  Transmission Date: 20100525
  Serious: Yes (Other)
  Sender: FDA-Public Use
  Company Number: 2009-4192

PATIENT
  Age: 48 Year
  Sex: Female

DRUGS (7)
  1. APO-GO AMPOULES (APO-GO) (APOMORPHINE HYDROCHLORIDE) (APOMORPHINE HYDR [Suspect]
     Indication: PARKINSON'S DISEASE
     Dosage: 60 MG (5 MG,) SUBCUTANEOUS
     Route: 058
     Dates: start: 20090914, end: 20090926
  2. ROPINIROLE [Concomitant]
  3. PERGOLIDE MESYLATE [Concomitant]
  4. ATENOLOL [Concomitant]
  5. SELEGILINE HCL [Concomitant]
  6. DOMPERIDONE (DOMPERIDONE) [Concomitant]
  7. BENDROFLUMETHIAZIDE (BENDROFLUMETHIAZIDE) [Concomitant]

REACTIONS (13)
  - ALANINE AMINOTRANSFERASE INCREASED [None]
  - ARTHRALGIA [None]
  - BLOOD ALKALINE PHOSPHATASE INCREASED [None]
  - BLOOD PRESSURE DECREASED [None]
  - C-REACTIVE PROTEIN INCREASED [None]
  - HAEMOGLOBIN DECREASED [None]
  - HEADACHE [None]
  - INJECTION SITE INFLAMMATION [None]
  - LYMPHOCYTE COUNT DECREASED [None]
  - MALAISE [None]
  - MYALGIA [None]
  - PALPITATIONS [None]
  - PYREXIA [None]
